FAERS Safety Report 24177149 (Version 1)
Quarter: 2024Q3

REPORT INFORMATION
  Report Type: Spontaneous
  Country: BE (occurrence: None)
  Receive Date: 20240806
  Receipt Date: 20240806
  Transmission Date: 20241016
  Serious: Yes (Other)
  Sender: UNICHEM
  Company Number: BE-Unichem Pharmaceuticals (USA) Inc-UCM202407-000961

PATIENT
  Age: 57 Year
  Sex: Male

DRUGS (2)
  1. AMIODARONE HYDROCHLORIDE [Suspect]
     Active Substance: AMIODARONE HYDROCHLORIDE
     Indication: Atrial fibrillation
     Dosage: UNKNOWN
  2. AMIODARONE HYDROCHLORIDE [Suspect]
     Active Substance: AMIODARONE HYDROCHLORIDE
     Indication: Ventricular tachycardia

REACTIONS (3)
  - Thyrotoxic crisis [Unknown]
  - Secondary hyperthyroidism [Unknown]
  - Product use in unapproved indication [Unknown]
